FAERS Safety Report 8882792 (Version 1)
Quarter: 2012Q4

REPORT INFORMATION
  Report Type: 
  Country: US (occurrence: US)
  Receive Date: 20121102
  Receipt Date: 20121102
  Transmission Date: 20130627
  Serious: No
  Sender: FDA-Public Use
  Company Number: US-ASTRAZENECA-2011SE66788

PATIENT
  Age: 59 Year
  Sex: Male

DRUGS (11)
  1. CRESTOR [Suspect]
     Route: 048
     Dates: start: 201104
  2. ACTIN [Concomitant]
  3. METFORMIN [Concomitant]
  4. AMLODIPINE [Concomitant]
  5. ZENOCAR HCT [Concomitant]
  6. OMEPRAZOLE [Concomitant]
  7. POTASSIUM [Concomitant]
  8. HUMALOG [Concomitant]
  9. TRICOR [Concomitant]
  10. D12 SHOTS [Concomitant]
  11. GLIZERIDE [Concomitant]

REACTIONS (3)
  - Breast mass [Unknown]
  - Breast swelling [Unknown]
  - Gynaecomastia [Unknown]
